FAERS Safety Report 5740154-8 (Version None)
Quarter: 2008Q2

REPORT INFORMATION
  Report Type: 
  Country: None (occurrence: None)
  Receive Date: 20080516
  Receipt Date: 20080508
  Transmission Date: 20081010
  Serious: No
  Sender: FDA-Public Use
  Company Number: DE-ROCHE-563309

PATIENT
  Sex: Female

DRUGS (3)
  1. ROACCUTAN [Suspect]
     Indication: DRUG USE FOR UNKNOWN INDICATION
     Route: 065
     Dates: start: 20060101
  2. ROACCUTAN [Suspect]
     Route: 065
     Dates: start: 20070201, end: 20071101
  3. ROACCUTAN [Suspect]
     Route: 065
     Dates: start: 20071215, end: 20080215

REACTIONS (2)
  - NO ADVERSE EVENT [None]
  - PREGNANCY [None]
